FAERS Safety Report 12428624 (Version 1)
Quarter: 2016Q2

REPORT INFORMATION
  Report Type: Spontaneous
  Country: None (occurrence: None)
  Receive Date: 20160601
  Receipt Date: 20160601
  Transmission Date: 20160815
  Serious: Yes (Life-Threatening)
  Sender: FDA-Public Use
  Company Number: None

PATIENT
  Age: 45 Year
  Sex: Female
  Weight: 80.29 kg

DRUGS (3)
  1. GADAVIST [Suspect]
     Active Substance: GADOBUTROL
     Indication: CERVICAL RADICULOPATHY
     Dosage: PER ORDER OF EXAM
     Route: 040
  2. MEDLINE ALCOHOL WIPE PAD. [Concomitant]
  3. BD VACUTAINER [Concomitant]

REACTIONS (6)
  - Cough [None]
  - Dyspnoea [None]
  - Sneezing [None]
  - Throat irritation [None]
  - Hypersensitivity [None]
  - Pruritus [None]

NARRATIVE: CASE EVENT DATE: 20160526
